FAERS Safety Report 5785917-8 (Version None)
Quarter: 2008Q2

REPORT INFORMATION
  Report Type: 
  Country: None (occurrence: None)
  Receive Date: 20080624
  Receipt Date: 20070913
  Transmission Date: 20081010
  Serious: No
  Sender: FDA-Public Use
  Company Number: US-ASTRAZENECA-2007UW13971

PATIENT
  Age: 45 Year
  Sex: Female

DRUGS (3)
  1. PULMICORT [Suspect]
     Indication: ALLERGY TO CHEMICALS
     Dosage: 2 PUFF AM; 2 PUFF PM
     Route: 055
     Dates: start: 20040101
  2. PULMICORT [Suspect]
     Indication: BRONCHOSPASM
     Dosage: 2 PUFF AM; 2 PUFF PM
     Route: 055
     Dates: start: 20040101
  3. SINGULAIR [Concomitant]

REACTIONS (3)
  - DIZZINESS [None]
  - DYSGEUSIA [None]
  - DYSPNOEA [None]
